FAERS Safety Report 25238561 (Version 1)
Quarter: 2025Q2

REPORT INFORMATION
  Report Type: Spontaneous
  Country: US (occurrence: US)
  Receive Date: 20250425
  Receipt Date: 20250425
  Transmission Date: 20250717
  Serious: Yes (Hospitalization)
  Sender: NOVITIUM PHARMA
  Company Number: US-NOVITIUMPHARMA-2025USNVP00973

PATIENT
  Age: 26 Year
  Sex: Male

DRUGS (3)
  1. LACOSAMIDE [Suspect]
     Active Substance: LACOSAMIDE
     Indication: Partial seizures
  2. DIVALPROEX SODIUM [Concomitant]
     Active Substance: DIVALPROEX SODIUM
     Indication: Partial seizures
  3. MIDAZOLAM [Concomitant]
     Active Substance: MIDAZOLAM
     Indication: Partial seizures

REACTIONS (2)
  - Swollen tongue [Unknown]
  - Drug ineffective [Unknown]
